FAERS Safety Report 9896642 (Version 2)
Quarter: 2014Q1

REPORT INFORMATION
  Report Type: Spontaneous
  Country: US (occurrence: US)
  Receive Date: 20140213
  Receipt Date: 20140213
  Transmission Date: 20141002
  Serious: No
  Sender: FDA-Public Use
  Company Number: US-BRISTOL-MYERS SQUIBB COMPANY-18872028

PATIENT
  Age: 82 Year
  Sex: Female
  Weight: 72.56 kg

DRUGS (3)
  1. ORENCIA [Suspect]
     Dosage: LAST INFUSION WAS ON 30APR2013.
     Route: 042
  2. LASIX [Concomitant]
  3. POTASSIUM [Concomitant]

REACTIONS (4)
  - Local swelling [Unknown]
  - Rash [Recovered/Resolved]
  - Weight increased [Unknown]
  - Nausea [Unknown]
